FAERS Safety Report 4654546-1 (Version None)
Quarter: 2005Q2

REPORT INFORMATION
  Report Type: 
  Country: None (occurrence: None)
  Receive Date: 20050504
  Receipt Date: 20050504
  Transmission Date: 20051028
  Serious: No
  Sender: FDA-Public Use
  Company Number: None

PATIENT
  Sex: Male
  Weight: 99 kg

DRUGS (3)
  1. CYTARABINE [Suspect]
     Dosage: 100 MG/M2/ DAY CIV ON DAYS 1-7
     Route: 042
     Dates: start: 20050329
  2. DAUNOMYCIN [Suspect]
     Dosage: 90 MG/M2 IV OVER 5-10 MIN ON DAYS 1,2, AND 3
     Route: 042
  3. ETOPOSIDE [Suspect]
     Dosage: 100 MG/M2 IV OVER 2 HOURS ON DAYS 1,2, AND 3
     Route: 042

REACTIONS (1)
  - RESPIRATORY FAILURE [None]
